FAERS Safety Report 4648409-5 (Version None)
Quarter: 2005Q2

REPORT INFORMATION
  Report Type: 
  Country: None (occurrence: None)
  Receive Date: 20050427
  Receipt Date: 20050415
  Transmission Date: 20051028
  Serious: Yes (Hospitalization)
  Sender: FDA-Public Use
  Company Number: HQWYE075418APR05

PATIENT
  Age: 76 Year
  Sex: Male

DRUGS (5)
  1. AMIODARONE HCL [Suspect]
     Dosage: INTRAVENOUS
     Route: 042
     Dates: start: 19991121, end: 19991122
  2. MORPHINE SULFATE [Concomitant]
  3. CYCLIZINE (CYCLIZINE) [Concomitant]
  4. CELIPROLOL (CELIPROLOL) [Concomitant]
  5. DIPYRIDAMOLE [Concomitant]

REACTIONS (5)
  - BLOOD CREATINE PHOSPHOKINASE INCREASED [None]
  - HEPATOCELLULAR DAMAGE [None]
  - HYPERPHOSPHATAEMIA [None]
  - PAIN [None]
  - VOMITING [None]
